FAERS Safety Report 8389551 (Version 2)
Quarter: 2015Q1

REPORT INFORMATION
  Report Type: Report from Study
  Country: US (occurrence: US)
  Receive Date: 20120203
  Receipt Date: 20150303
  Transmission Date: 20150721
  Serious: Yes (Death, Other)
  Sender: FDA-Public Use
  Company Number: US-ROCHE-1036203

PATIENT
  Age: 59 Year
  Sex: Male

DRUGS (25)
  1. DEXAMETHASONE SODIUM PHOSPHATE. [Concomitant]
     Active Substance: DEXAMETHASONE SODIUM PHOSPHATE
     Route: 042
     Dates: start: 20060427
  2. COMPAZINE [Concomitant]
     Active Substance: PROCHLORPERAZINE MALEATE
     Route: 048
     Dates: start: 20060406
  3. HUMULIN R [Concomitant]
     Active Substance: INSULIN HUMAN
     Dosage: DOSE: 100 (UNIT NOT REPORTED); AS DIRECTED
     Route: 058
  4. IMODIUM A-D [Concomitant]
     Active Substance: LOPERAMIDE HYDROCHLORIDE
     Route: 048
  5. LIDOCAINE - PRILOCAIN CREAM [Concomitant]
     Route: 061
  6. AMYLASE/LIPASE/PROTEASE [Concomitant]
     Route: 048
  7. TARCEVA [Suspect]
     Active Substance: ERLOTINIB HYDROCHLORIDE
     Indication: PANCREATIC CARCINOMA METASTATIC
     Route: 048
     Dates: end: 20070111
  8. AVASTIN [Suspect]
     Active Substance: BEVACIZUMAB
     Indication: PANCREATIC CARCINOMA
     Dosage: MOST RECENT DOSE: 25/JAN/2007.
     Route: 042
     Dates: start: 20061102
  9. METFORMIN HYDROCHLORIDE. [Concomitant]
     Active Substance: METFORMIN HYDROCHLORIDE
     Route: 048
  10. REGLAN [Concomitant]
     Active Substance: METOCLOPRAMIDE HYDROCHLORIDE
     Route: 048
  11. SENOKOT [Concomitant]
     Active Substance: SENNOSIDES
  12. MILK OF MAGNESIA [Concomitant]
     Active Substance: MAGNESIUM HYDROXIDE
     Route: 065
  13. PALONOSETRON HYDROCHLORIDE [Concomitant]
     Active Substance: PALONOSETRON HYDROCHLORIDE
     Route: 042
  14. GRANISETRON HYDROCHLORIDE. [Concomitant]
     Active Substance: GRANISETRON HYDROCHLORIDE
     Route: 048
     Dates: start: 20060406
  15. NEULASTA [Concomitant]
     Active Substance: PEGFILGRASTIM
     Route: 058
  16. ESCITALOPRAM OXALATE. [Concomitant]
     Active Substance: ESCITALOPRAM OXALATE
     Route: 048
  17. NEXIUM [Concomitant]
     Active Substance: ESOMEPRAZOLE MAGNESIUM
     Route: 048
  18. OXALIPLATIN. [Concomitant]
     Active Substance: OXALIPLATIN
  19. VICODIN [Concomitant]
     Active Substance: ACETAMINOPHEN\HYDROCODONE BITARTRATE
     Dosage: DOSE: 1-2 (UNIT NOT REPORTED)
     Route: 065
  20. FENTANYL TRANSDERMAL SYSTEM [Concomitant]
     Active Substance: FENTANYL
     Route: 065
  21. GEMZAR [Concomitant]
     Active Substance: GEMCITABINE HYDROCHLORIDE
  22. GEMCITABINE [Concomitant]
     Active Substance: GEMCITABINE\GEMCITABINE HYDROCHLORIDE
     Route: 042
     Dates: start: 20060427
  23. LANTUS [Concomitant]
     Active Substance: INSULIN GLARGINE
     Dosage: DOSE: 100 (UNIT NOT REPORTED).
     Route: 058
  24. OXYCODONE HCL [Concomitant]
     Active Substance: OXYCODONE HYDROCHLORIDE
     Route: 048
     Dates: start: 20060409
  25. OXYCONTIN [Concomitant]
     Active Substance: OXYCODONE HYDROCHLORIDE
     Dosage: DOSE: 10 (UNIT NOT REPORTED)
     Route: 065

REACTIONS (11)
  - Weight decreased [Unknown]
  - Suicidal ideation [Unknown]
  - Pain in extremity [Unknown]
  - Disease progression [Unknown]
  - Pruritus [Unknown]
  - Hepatic enzyme increased [Unknown]
  - Drug dose omission [Unknown]
  - Off label use [Unknown]
  - Death [Fatal]
  - Decreased appetite [Unknown]
  - Abdominal pain [Unknown]

NARRATIVE: CASE EVENT DATE: 20070302
